FAERS Safety Report 5466905-8 (Version None)
Quarter: 2007Q3

REPORT INFORMATION
  Report Type: 
  Country: None (occurrence: None)
  Receive Date: 20070925
  Receipt Date: 20070920
  Transmission Date: 20080115
  Serious: Yes (Death, Hospitalization, Other)
  Sender: FDA-Public Use
  Company Number: PHBS2007CH15635

PATIENT
  Age: 35 Year
  Sex: Male

DRUGS (6)
  1. CYCLOSPORINE [Suspect]
     Indication: BONE MARROW TRANSPLANT
     Dates: start: 20000501
  2. CYCLOPHOSPHAMIDE [Concomitant]
  3. IRRADIATION [Concomitant]
  4. ATG-FRESENIUS [Concomitant]
  5. MONOCLONAL ANTIBODIES [Suspect]
     Indication: BONE MARROW TRANSPLANT
  6. METHOTREXATE [Suspect]
     Indication: BONE MARROW TRANSPLANT

REACTIONS (20)
  - ACUTE GRAFT VERSUS HOST DISEASE [None]
  - ASTHENIA [None]
  - BLINDNESS [None]
  - CHRONIC GRAFT VERSUS HOST DISEASE [None]
  - COUGH [None]
  - CYTOMEGALOVIRUS INFECTION [None]
  - DIARRHOEA [None]
  - EMBOLISM INFECTIVE [None]
  - EXOPHTHALMOS [None]
  - GASTRIC ULCER [None]
  - INTESTINAL ULCER [None]
  - LUNG INFILTRATION [None]
  - MUCORMYCOSIS [None]
  - PAIN IN JAW [None]
  - PULMONARY NECROSIS [None]
  - PYREXIA [None]
  - RHINORRHOEA [None]
  - SINUSITIS [None]
  - SWELLING [None]
  - VOMITING [None]
